FAERS Safety Report 6515416-7 (Version None)
Quarter: 2009Q4

REPORT INFORMATION
  Report Type: 
  Country: None (occurrence: None)
  Receive Date: 20091223
  Receipt Date: 20091217
  Transmission Date: 20100525
  Serious: Yes (Other)
  Sender: FDA-Public Use
  Company Number: JP-ROCHE-674807

PATIENT

DRUGS (3)
  1. CELLCEPT [Suspect]
     Indication: NEPHROTIC SYNDROME
     Route: 048
  2. PREDNISOLONE [Concomitant]
  3. CYCLOSPORINE [Concomitant]

REACTIONS (1)
  - KIDNEY FIBROSIS [None]
